FAERS Safety Report 17761727 (Version 1)
Quarter: 2020Q2

REPORT INFORMATION
  Report Type: Spontaneous
  Country: FR (occurrence: FR)
  Receive Date: 20200508
  Receipt Date: 20200508
  Transmission Date: 20200714
  Serious: Yes (Other)
  Sender: FDA-Public Use
  Company Number: FR-CADILA HEALTHCARE LIMITED-FR-ZYDUS-026806

PATIENT

DRUGS (1)
  1. METFORMIN [Suspect]
     Active Substance: METFORMIN HYDROCHLORIDE
     Indication: FOETAL EXPOSURE DURING PREGNANCY
     Dosage: 2 GRAM,(INTERVAL :1 DAYS)
     Route: 064
     Dates: start: 20171104, end: 201801

REACTIONS (1)
  - Foetal malnutrition [Not Recovered/Not Resolved]

NARRATIVE: CASE EVENT DATE: 20180715
